FAERS Safety Report 26062894 (Version 1)
Quarter: 2025Q4

REPORT INFORMATION
  Report Type: Spontaneous
  Country: JP (occurrence: JP)
  Receive Date: 20251119
  Receipt Date: 20251119
  Transmission Date: 20260118
  Serious: Yes (Life-Threatening, Other)
  Sender: BAXTER
  Company Number: JP-BAXTER-2025BAX023401

PATIENT
  Age: 77 Year
  Sex: Male
  Weight: 64.9 kg

DRUGS (12)
  1. SUGAMMADEX [Suspect]
     Active Substance: SUGAMMADEX
     Indication: Neuromuscular blockade reversal
     Dosage: 200 MG PER ONCE
     Route: 042
     Dates: start: 20251024
  2. SUPRANE [Suspect]
     Active Substance: DESFLURANE
     Indication: General anaesthesia
     Dosage: UNK
     Dates: start: 20251024
  3. ACETAMINOPHEN [Suspect]
     Active Substance: ACETAMINOPHEN
     Indication: Postoperative analgesia
     Dosage: 1000 MG PER ONCE
     Route: 042
     Dates: start: 20251024
  4. FLURBIPROFEN AXETIL [Suspect]
     Active Substance: FLURBIPROFEN AXETIL
     Indication: Postoperative analgesia
     Dosage: 50MG PER ONCE
     Route: 042
     Dates: start: 20251024
  5. TENELIGLIPTIN [Suspect]
     Active Substance: TENELIGLIPTIN
     Indication: Type 2 diabetes mellitus
     Dosage: 20 MG, QD (ONCE DAILY)
     Route: 048
  6. LUSEOGLIFLOZIN [Concomitant]
     Active Substance: LUSEOGLIFLOZIN
     Indication: Type 2 diabetes mellitus
     Dosage: 2.5 MG, QD (ONCE DAILY)
     Route: 048
  7. AMLODIPINE BESYLATE\AZILSARTAN [Concomitant]
     Active Substance: AMLODIPINE BESYLATE\AZILSARTAN
     Indication: Hypertension
     Dosage: 1 DOSAGE FORM (TAB), QD (ONCE DAILY)
     Route: 048
  8. ROSUVASTATIN [Concomitant]
     Active Substance: ROSUVASTATIN
     Indication: Lipids abnormal
     Dosage: 2.5 MG, QD (ONCE DAILY)
     Route: 048
  9. REMIFENTANIL [Concomitant]
     Active Substance: REMIFENTANIL
     Indication: General anaesthesia
     Dosage: UNK
     Route: 042
     Dates: start: 20251024
  10. ROCURONIUM [Concomitant]
     Active Substance: ROCURONIUM BROMIDE
     Indication: General anaesthesia
     Dosage: UNK
     Route: 042
     Dates: start: 20251024
  11. CEFAZOLIN SODIUM [Concomitant]
     Active Substance: CEFAZOLIN SODIUM
     Indication: Infection prophylaxis
     Dosage: 1 G PER ONCE
     Route: 042
     Dates: start: 20251024
  12. PROPOFOL [Concomitant]
     Active Substance: PROPOFOL
     Indication: General anaesthesia
     Dosage: 100 MG PER ONCE
     Route: 042
     Dates: start: 20251024

REACTIONS (7)
  - Asthma [Recovered/Resolved]
  - Airway peak pressure increased [Recovered/Resolved]
  - Oxygen saturation decreased [Recovered/Resolved]
  - Wheezing [Recovered/Resolved]
  - Anaphylactic reaction [Recovered/Resolved]
  - Erythema [Unknown]
  - Rash erythematous [Recovered/Resolved]

NARRATIVE: CASE EVENT DATE: 20251024
